FAERS Safety Report 17057413 (Version 1)
Quarter: 2019Q4

REPORT INFORMATION
  Report Type: Spontaneous
  Country: TR (occurrence: TR)
  Receive Date: 20191121
  Receipt Date: 20191121
  Transmission Date: 20200122
  Serious: Yes (Other)
  Sender: FDA-Public Use
  Company Number: TR-ALKEM LABORATORIES LIMITED-TR-ALKEM-2019-09758

PATIENT
  Sex: Male

DRUGS (4)
  1. MYCOPHENOLATE MOFETIL. [Suspect]
     Active Substance: MYCOPHENOLATE MOFETIL
     Indication: PEMPHIGUS
     Dosage: UNK
     Route: 065
  2. AZATHIOPRINE. [Suspect]
     Active Substance: AZATHIOPRINE
     Indication: PEMPHIGUS
     Dosage: UNK
     Route: 065
  3. DAPSONE. [Suspect]
     Active Substance: DAPSONE
     Indication: PEMPHIGUS
     Dosage: UNK
     Route: 065
  4. CYCLOPHOSPHAMIDE. [Suspect]
     Active Substance: CYCLOPHOSPHAMIDE
     Indication: PEMPHIGUS
     Dosage: UNK
     Route: 065

REACTIONS (7)
  - Superinfection bacterial [Unknown]
  - Cushingoid [Unknown]
  - Behaviour disorder [Unknown]
  - Osteopenia [Unknown]
  - Growth retardation [Unknown]
  - Gastrointestinal candidiasis [Unknown]
  - Drug resistance [Unknown]
